FAERS Safety Report 10213656 (Version 1)
Quarter: 2014Q2

REPORT INFORMATION
  Report Type: Spontaneous
  Country: US (occurrence: None)
  Receive Date: 20140602
  Receipt Date: 20140602
  Transmission Date: 20141212
  Serious: Yes (Disabling)
  Sender: FDA-Public Use
  Company Number: None

PATIENT
  Age: 81 Year
  Sex: Male

DRUGS (1)
  1. FETZIMA [Suspect]
     Indication: DEPRESSION
     Dosage: 1 PILL ONCE DAILY TAKEN BY MOUTH
     Route: 048
     Dates: start: 20140212, end: 20140221

REACTIONS (7)
  - Urinary retention [None]
  - Blood pressure systolic increased [None]
  - Tachycardia [None]
  - Dizziness [None]
  - Hyperhidrosis [None]
  - Product label issue [None]
  - Labile blood pressure [None]
